FAERS Safety Report 5262472-2 (Version None)
Quarter: 2007Q1

REPORT INFORMATION
  Report Type: 
  Country: None (occurrence: None)
  Receive Date: 20070312
  Receipt Date: 20070308
  Transmission Date: 20070707
  Serious: Yes (Death, Hospitalization)
  Sender: FDA-Public Use
  Company Number: JP-BRISTOL-MYERS SQUIBB COMPANY-13707203

PATIENT
  Age: 73 Year
  Sex: Male

DRUGS (2)
  1. CISPLATIN [Suspect]
     Indication: LUNG NEOPLASM MALIGNANT
  2. PICIBANIL [Suspect]

REACTIONS (4)
  - AIR EMBOLISM [None]
  - CEREBRAL INFARCTION [None]
  - HEMIPLEGIA [None]
  - PNEUMONIA [None]
